FAERS Safety Report 4421238-3 (Version None)
Quarter: 2004Q3

REPORT INFORMATION
  Report Type: 
  Country: None (occurrence: None)
  Receive Date: 20040804
  Receipt Date: 20040722
  Transmission Date: 20050211
  Serious: Yes (Hospitalization, Disabling, Congenital Anomaly)
  Sender: FDA-Public Use
  Company Number: 04P-056-0254091-00

PATIENT
  Age: 1 Day
  Sex: Male
  Weight: 3.39 kg

DRUGS (1)
  1. VALPROATE SODIUM [Suspect]

REACTIONS (9)
  - APPETITE DISORDER [None]
  - BRAIN MALFORMATION [None]
  - COLOBOMA [None]
  - CONGENITAL ANOMALY [None]
  - DEVELOPMENTAL DELAY [None]
  - DRUG EXPOSURE DURING PREGNANCY [None]
  - HYPOTONIA NEONATAL [None]
  - POOR SUCKING REFLEX [None]
  - WEIGHT DECREASE NEONATAL [None]
